FAERS Safety Report 10327438 (Version 3)
Quarter: 2014Q4

REPORT INFORMATION
  Report Type: Report from Study
  Country: JP (occurrence: JP)
  Receive Date: 20140721
  Receipt Date: 20141003
  Transmission Date: 20150528
  Serious: Yes (Hospitalization, Other)
  Sender: FDA-Public Use
  Company Number: JP-AMGEN-JPNCT2013092714

PATIENT
  Age: 69 Year
  Sex: Male
  Weight: 64 kg

DRUGS (39)
  1. AKINETON                           /00079503/ [Concomitant]
     Dosage: UNK
     Route: 030
  2. ALFAROL [Concomitant]
     Active Substance: ALFACALCIDOL
     Indication: NEPHROSCLEROSIS
     Dosage: UNK
     Route: 048
  3. URINORM [Concomitant]
     Active Substance: BENZBROMARONE
     Dosage: UNK
     Route: 048
  4. URALYT U                           /06402701/ [Concomitant]
     Dosage: UNK
     Route: 048
  5. PURSENNID                          /00571902/ [Concomitant]
     Active Substance: SENNOSIDES A AND B
     Dosage: UNK
     Route: 048
  6. LENDORMIN [Concomitant]
     Active Substance: BROTIZOLAM
     Dosage: UNK
     Route: 048
  7. EKSALB [Concomitant]
     Dosage: UNK
     Route: 062
  8. MYSLEE [Concomitant]
     Active Substance: ZOLPIDEM TARTRATE
     Dosage: UNK
     Route: 048
  9. SODIUM CHLORIDE. [Concomitant]
     Active Substance: SODIUM CHLORIDE
     Dosage: UNK
     Route: 048
  10. RESTAMIN                           /00000401/ [Concomitant]
     Dosage: UNK
     Route: 061
  11. SERENACE [Concomitant]
     Active Substance: HALOPERIDOL
     Dosage: UNK
     Route: 065
  12. EPOGIN [Concomitant]
     Dosage: UNK
     Route: 065
  13. ISODINE [Concomitant]
     Active Substance: POVIDONE-IODINE
     Dosage: UNK
     Route: 049
  14. LOXONIN [Concomitant]
     Active Substance: LOXOPROFEN SODIUM
     Dosage: UNK
     Route: 048
  15. SENNOSIDE                          /00571901/ [Concomitant]
     Active Substance: SENNOSIDES A AND B
     Dosage: UNK
     Route: 048
  16. FEBURIC [Concomitant]
     Active Substance: FEBUXOSTAT
     Indication: NEPHROSCLEROSIS
     Dosage: UNK
     Route: 048
  17. LASIX [Concomitant]
     Active Substance: FUROSEMIDE
     Indication: NEPHROSCLEROSIS
     Dosage: UNK
     Route: 048
  18. ASTOMIN                            /00426502/ [Concomitant]
     Dosage: UNK
     Route: 048
  19. ROZEREM [Concomitant]
     Active Substance: RAMELTEON
     Dosage: UNK
     Route: 048
  20. NEOSTELIN GREEN [Concomitant]
     Dosage: UNK
     Route: 049
  21. DIOVAN [Concomitant]
     Active Substance: VALSARTAN
     Dosage: UNK
     Route: 048
  22. NORVASC [Concomitant]
     Active Substance: AMLODIPINE BESYLATE
     Dosage: UNK UNK, QD
  23. TAKEPRON [Concomitant]
     Active Substance: LANSOPRAZOLE
     Dosage: UNK
     Route: 048
  24. MEVALOTIN [Concomitant]
     Active Substance: PRAVASTATIN SODIUM
     Dosage: UNK
     Route: 048
  25. EXFORGE [Concomitant]
     Active Substance: AMLODIPINE BESYLATE\VALSARTAN
     Dosage: UNK
     Route: 048
  26. HIRUDOID                           /00723701/ [Concomitant]
     Dosage: UNK
     Route: 061
  27. ADOFEED [Concomitant]
     Active Substance: FLURBIPROFEN
     Dosage: UNK
     Route: 062
  28. VENILON [Concomitant]
     Active Substance: HUMAN IMMUNOGLOBULIN G
     Dosage: UNK
     Route: 065
  29. DARBEPOETIN ALFA - KHK [Suspect]
     Active Substance: DARBEPOETIN ALFA
     Indication: NEPHROGENIC ANAEMIA
     Dosage: 60 MUG, UNK
     Route: 058
     Dates: start: 20110609
  30. AMOBAN [Concomitant]
     Active Substance: ZOPICLONE
     Dosage: UNK
     Route: 048
  31. ARGAMATE [Concomitant]
     Active Substance: POLYSTYRENE
     Dosage: UNK
     Route: 048
  32. SILECE [Concomitant]
     Active Substance: FLUNITRAZEPAM
     Dosage: UNK
     Route: 048
  33. ARTIST [Concomitant]
     Active Substance: CARVEDILOL
     Dosage: UNK
     Route: 048
  34. MOHRUS [Concomitant]
     Active Substance: KETOPROFEN
     Dosage: UNK
     Route: 062
  35. SP TROCHE [Concomitant]
     Active Substance: DEQUALINIUM CHLORIDE
     Dosage: UNK
     Route: 048
  36. ALMETA [Concomitant]
     Active Substance: ALCLOMETASONE DIPROPIONATE
     Dosage: UNK
     Route: 061
  37. SAWACILLIN [Concomitant]
     Active Substance: AMOXICILLIN
     Dosage: UNK
     Route: 048
  38. RHUBARB. [Concomitant]
     Active Substance: RHUBARB
     Dosage: UNK
     Route: 048
  39. KALIMATE [Concomitant]
     Active Substance: POLYSTYRENE SULFONIC ACID
     Dosage: UNK
     Route: 048

REACTIONS (13)
  - Cardiac failure [Recovered/Resolved]
  - Upper respiratory tract inflammation [Recovered/Resolved]
  - Diarrhoea [Recovered/Resolved]
  - Sepsis [Recovered/Resolved]
  - Enterocolitis [Recovered/Resolved]
  - Cellulitis [Recovered/Resolved]
  - Chronic gastritis [Recovered/Resolved]
  - Thoracic vertebral fracture [Recovered/Resolved]
  - Upper respiratory tract inflammation [Recovered/Resolved]
  - Hepatic function abnormal [Recovered/Resolved]
  - Endocarditis bacterial [Recovered/Resolved]
  - Cerebral artery embolism [Recovered/Resolved]
  - Urticaria [Recovered/Resolved]

NARRATIVE: CASE EVENT DATE: 20120203
